FAERS Safety Report 8501821 (Version 3)
Quarter: 2013Q2

REPORT INFORMATION
  Report Type: Spontaneous
  Country: US (occurrence: None)
  Receive Date: 20120327
  Receipt Date: 20120709
  Transmission Date: 20140414
  Serious: Yes (Other)
  Sender: FDA-Public Use
  Company Number: PHHY2010US24496

PATIENT
  Age: 45 Year
  Sex: Female

DRUGS (1)
  1. GLEEVEC [Suspect]
     Indication: CHRONIC MYELOID LEUKAEMIA
     Route: 048
     Dates: start: 20110720

REACTIONS (6)
  - COLITIS [None]
  - DIARRHOEA HAEMORRHAGIC [None]
  - VOMITING [None]
  - NAUSEA [None]
  - Musculoskeletal chest pain [None]
  - Inflammatory bowel disease [None]
